FAERS Safety Report 11065826 (Version 2)
Quarter: 2015Q2

REPORT INFORMATION
  Report Type: Spontaneous
  Country: US (occurrence: US)
  Receive Date: 20150425
  Receipt Date: 20150525
  Transmission Date: 20150821
  Serious: Yes (Other)
  Sender: FDA-Public Use
  Company Number: US-JNJFOC-20120912577

PATIENT
  Age: 65 Year

DRUGS (1)
  1. LEVAQUIN [Suspect]
     Active Substance: LEVOFLOXACIN
     Indication: INFLAMMATION
     Route: 048
     Dates: start: 20090724, end: 20090804

REACTIONS (4)
  - Tendon rupture [Unknown]
  - Arthropathy [Unknown]
  - Depression [Not Recovered/Not Resolved]
  - Rotator cuff syndrome [Unknown]

NARRATIVE: CASE EVENT DATE: 200909
